FAERS Safety Report 12376230 (Version 7)
Quarter: 2017Q3

REPORT INFORMATION
  Report Type: Report from Study
  Country: IL (occurrence: IL)
  Receive Date: 20160517
  Receipt Date: 20170811
  Transmission Date: 20171127
  Serious: Yes (Hospitalization, Other)
  Sender: FDA-Public Use
  Company Number: IL-INCYTE CORPORATION-2016IN002196

PATIENT

DRUGS (2)
  1. JAKAVI [Suspect]
     Active Substance: RUXOLITINIB
     Indication: MYELOFIBROSIS
     Dosage: 15 MG, QD (10 MG A.M, 5 MG P.M)
     Route: 048
     Dates: start: 20160210
  2. MOMELOTINIB [Concomitant]
     Active Substance: MOMELOTINIB
     Indication: PRODUCT USED FOR UNKNOWN INDICATION
     Dosage: UNK
     Route: 065

REACTIONS (15)
  - Peritonitis [Recovering/Resolving]
  - Constipation [Recovered/Resolved]
  - Haemoglobin decreased [Unknown]
  - Night sweats [Not Recovered/Not Resolved]
  - Ammonia increased [Unknown]
  - Fatigue [Not Recovered/Not Resolved]
  - Hepatic encephalopathy [Recovered/Resolved]
  - Hepatic cirrhosis [Not Recovered/Not Resolved]
  - Decreased appetite [Not Recovered/Not Resolved]
  - Decreased activity [Not Recovered/Not Resolved]
  - Weight increased [Unknown]
  - Weight decreased [Recovered/Resolved]
  - Splenomegaly [Unknown]
  - Peritonitis bacterial [Recovered/Resolved]
  - Abdominal pain [Not Recovered/Not Resolved]

NARRATIVE: CASE EVENT DATE: 20160426
